FAERS Safety Report 17718029 (Version 1)
Quarter: 2020Q2

REPORT INFORMATION
  Report Type: Spontaneous
  Country: US (occurrence: US)
  Receive Date: 20200428
  Receipt Date: 20200428
  Transmission Date: 20200714
  Serious: Yes (Hospitalization)
  Sender: FDA-Public Use
  Company Number: None

PATIENT
  Age: 36 Year
  Sex: Female

DRUGS (18)
  1. BARACLUDE [Concomitant]
     Active Substance: ENTECAVIR
     Dosage: ?
  2. PANTOPRAZOLE [Concomitant]
     Active Substance: PANTOPRAZOLE
  3. VALCYTE [Concomitant]
     Active Substance: VALGANCICLOVIR HYDROCHLORIDE
  4. FUROSEMIDE. [Concomitant]
     Active Substance: FUROSEMIDE
  5. VALCYTE [Concomitant]
     Active Substance: VALGANCICLOVIR HYDROCHLORIDE
  6. SEVELAMER [Concomitant]
     Active Substance: SEVELAMER
  7. NIFEDIPINE. [Concomitant]
     Active Substance: NIFEDIPINE
  8. PROCARDIA [Concomitant]
     Active Substance: NIFEDIPINE
  9. PROGRAF [Concomitant]
     Active Substance: TACROLIMUS
  10. DIFLUCAN [Concomitant]
     Active Substance: FLUCONAZOLE
  11. NIFEDIPINE. [Concomitant]
     Active Substance: NIFEDIPINE
  12. PROCARDIA [Concomitant]
     Active Substance: NIFEDIPINE
  13. TACROLIMUS 1 MG [Suspect]
     Active Substance: TACROLIMUS
     Indication: LIVER TRANSPLANT
     Dosage: 4 MG QD MORNIN PO?
     Route: 048
  14. FUROSEMIDE. [Concomitant]
     Active Substance: FUROSEMIDE
  15. SEVELAMER [Concomitant]
     Active Substance: SEVELAMER
  16. BACTRIM [Concomitant]
     Active Substance: SULFAMETHOXAZOLE\TRIMETHOPRIM
  17. PREDNISONE. [Concomitant]
     Active Substance: PREDNISONE
  18. DIFLUCAN [Concomitant]
     Active Substance: FLUCONAZOLE

REACTIONS (2)
  - Seizure [None]
  - Drug level increased [None]
